FAERS Safety Report 5575957-6 (Version None)
Quarter: 2007Q4

REPORT INFORMATION
  Report Type: 
  Country: None (occurrence: None)
  Receive Date: 20071130
  Receipt Date: 20070806
  Transmission Date: 20080405
  Serious: No
  Sender: FDA-Public Use
  Company Number: US200708001937

PATIENT
  Age: 60 Year
  Sex: Male
  Weight: 96.6 kg

DRUGS (3)
  1. BYETTA [Suspect]
     Indication: TYPE 2 DIABETES MELLITUS
     Dosage: 5  UG, 2/D, SUBCUTANEOUS, 10 UG, 2/D, SUBCUTANEOUS
     Route: 058
     Dates: start: 20070201, end: 20070301
  2. BYETTA [Suspect]
     Indication: TYPE 2 DIABETES MELLITUS
     Dosage: 5  UG, 2/D, SUBCUTANEOUS, 10 UG, 2/D, SUBCUTANEOUS
     Route: 058
     Dates: start: 20070301
  3. STARLIX [Concomitant]

REACTIONS (1)
  - BLOOD GLUCOSE INCREASED [None]
